FAERS Safety Report 8192721-2 (Version None)
Quarter: 2012Q1

REPORT INFORMATION
  Report Type: 
  Country: None (occurrence: None)
  Receive Date: 20120308
  Receipt Date: 20120301
  Transmission Date: 20120608
  Serious: No
  Sender: FDA-Public Use
  Company Number: US-PFIZER INC-2012000809

PATIENT
  Sex: Female

DRUGS (3)
  1. PROCARDIA XL [Suspect]
     Dosage: 30 MG, DAILY
     Route: 048
  2. LIPITOR [Suspect]
     Dosage: 10 MG, DAILY
     Route: 048
  3. ZOLOFT [Suspect]
     Dosage: 150 MG, DAILY
     Route: 048

REACTIONS (1)
  - FEELING ABNORMAL [None]
